FAERS Safety Report 16347841 (Version 1)
Quarter: 2019Q2

REPORT INFORMATION
  Report Type: Spontaneous
  Country: US (occurrence: US)
  Receive Date: 20190523
  Receipt Date: 20190523
  Transmission Date: 20190711
  Serious: No
  Sender: FDA-Public Use
  Company Number: US-GLAXOSMITHKLINE-US2019091168

PATIENT
  Sex: Female

DRUGS (2)
  1. ROPINIROLE TABLET [Suspect]
     Active Substance: ROPINIROLE
     Indication: RESTLESS LEGS SYNDROME
     Dosage: 2 MG, BID
     Route: 048
     Dates: start: 2018
  2. ROPINIROLE TABLET [Suspect]
     Active Substance: ROPINIROLE
     Dosage: 3 MG, AT BEDTIME
     Route: 048
     Dates: start: 2018

REACTIONS (2)
  - Drug ineffective [Unknown]
  - Product substitution issue [Unknown]
